FAERS Safety Report 13635242 (Version 2)
Quarter: 2017Q2

REPORT INFORMATION
  Report Type: Spontaneous
  Country: US (occurrence: US)
  Receive Date: 20170609
  Receipt Date: 20170613
  Transmission Date: 20170830
  Serious: No
  Sender: FDA-Public Use
  Company Number: US-PFIZER INC-2017250124

PATIENT
  Age: 58 Year
  Sex: Female

DRUGS (4)
  1. GABAPENTIN. [Suspect]
     Active Substance: GABAPENTIN
     Indication: FIBROMYALGIA
     Dosage: 300 MG, 2X/DAY (MORNING AND AT NIGHT)
     Route: 048
     Dates: start: 201610
  2. PERCOCET [Concomitant]
     Active Substance: ACETAMINOPHEN\OXYCODONE HYDROCHLORIDE
     Indication: PAIN
     Dosage: TWICE A DAY AS NEEDED
  3. PROAIR HFA [Concomitant]
     Active Substance: ALBUTEROL SULFATE
     Indication: CHRONIC OBSTRUCTIVE PULMONARY DISEASE
     Dosage: INHALER
  4. SOMA [Concomitant]
     Active Substance: CARISOPRODOL
     Indication: MUSCLE DISORDER
     Dosage: 350 MG AS NEEDED, TWICE A DAY
     Route: 048

REACTIONS (7)
  - Malaise [Not Recovered/Not Resolved]
  - Vomiting [Unknown]
  - Formication [Unknown]
  - Amnesia [Not Recovered/Not Resolved]
  - Urinary tract infection [Not Recovered/Not Resolved]
  - Product use in unapproved indication [Unknown]
  - Vertigo [Unknown]
